FAERS Safety Report 8476462-X (Version None)
Quarter: 2012Q2

REPORT INFORMATION
  Report Type: 
  Country: None (occurrence: None)
  Receive Date: 20120622
  Receipt Date: 20120613
  Transmission Date: 20120825
  Serious: Yes (Other)
  Sender: FDA-Public Use
  Company Number: 2012SP032674

PATIENT
  Age: 27 Year
  Sex: Female
  Weight: 79 kg

DRUGS (7)
  1. ACETAMINOPHEN [Concomitant]
  2. PENICILLIN [Concomitant]
  3. SERTRALINE HYDROCHLORIDE [Concomitant]
  4. ACETAMINOPHEN AND CODEINE PHOSPHATE [Concomitant]
  5. NEXPLANON [Suspect]
     Dosage: 68 MG, SBDE
     Route: 059
     Dates: start: 20110201
  6. OMEPRAZOLE [Concomitant]
  7. TRIMETHOPRIM [Concomitant]

REACTIONS (5)
  - NAUSEA [None]
  - PHYTOTHERAPY [None]
  - LETHARGY [None]
  - VAGINAL HAEMORRHAGE [None]
  - PREGNANCY WITH IMPLANT CONTRACEPTIVE [None]
